FAERS Safety Report 21902406 (Version 1)
Quarter: 2023Q1

REPORT INFORMATION
  Report Type: Spontaneous
  Country: US (occurrence: US)
  Receive Date: 20230124
  Receipt Date: 20230124
  Transmission Date: 20230418
  Serious: Yes (Hospitalization)
  Sender: FDA-Public Use
  Company Number: US-SUN PHARMACEUTICAL INDUSTRIES LTD-2023R1-374039

PATIENT
  Age: 35 Year
  Sex: Male

DRUGS (1)
  1. SULFAMETHOXAZOLE\TRIMETHOPRIM [Suspect]
     Active Substance: SULFAMETHOXAZOLE\TRIMETHOPRIM
     Indication: Abscess
     Dosage: UNK BID
     Route: 065

REACTIONS (3)
  - Rash maculo-papular [Recovered/Resolved]
  - Self-medication [Unknown]
  - Drug eruption [Recovered/Resolved]
